FAERS Safety Report 15706503 (Version 1)
Quarter: 2018Q4

REPORT INFORMATION
  Report Type: Spontaneous
  Country: CA (occurrence: CA)
  Receive Date: 20181210
  Receipt Date: 20181210
  Transmission Date: 20190205
  Serious: Yes (Life-Threatening, Other)
  Sender: FDA-Public Use
  Company Number: CA-SA-2018SA331307

PATIENT
  Age: 31 Year
  Sex: Female

DRUGS (1)
  1. CLOMIFENE CITRATE [Suspect]
     Active Substance: CLOMIPHENE
     Indication: INFERTILITY
     Dosage: 50 MG, BID
     Route: 048

REACTIONS (3)
  - Ocular icterus [Recovered/Resolved]
  - Vision blurred [Recovered/Resolved]
  - Dyschromatopsia [Recovered/Resolved]
